FAERS Safety Report 13166641 (Version 1)
Quarter: 2017Q1

REPORT INFORMATION
  Report Type: Spontaneous
  Country: US (occurrence: US)
  Receive Date: 20170126
  Receipt Date: 20170126
  Transmission Date: 20170428
  Serious: Yes (Other)
  Sender: FDA-Public Use
  Company Number: None

PATIENT
  Age: 56 Year
  Weight: 74.25 kg

DRUGS (10)
  1. HYDROCHLORIDE [Concomitant]
     Active Substance: UNSPECIFIED INGREDIENT
  2. AMLODAPINE [Concomitant]
  3. ZINC. [Concomitant]
     Active Substance: ZINC
  4. VITAMIN D3 [Concomitant]
     Active Substance: CHOLECALCIFEROL
  5. MULTI MINERALS [Concomitant]
     Active Substance: MINERALS\VITAMINS
  6. B [Concomitant]
  7. ATENOLOL. [Concomitant]
     Active Substance: ATENOLOL
  8. VITAMIN A [Concomitant]
     Active Substance: VITAMIN A
  9. C [Concomitant]
  10. LOSARTAN POTASSIUM 100 [Suspect]
     Active Substance: LOSARTAN POTASSIUM
     Indication: HYPERTENSION
     Dosage: ?          QUANTITY:1 TABLET(S);OTHER ROUTE:BY MOUTH?
     Route: 048
     Dates: start: 20161001, end: 20170119

REACTIONS (10)
  - Pruritus [None]
  - Memory impairment [None]
  - Quality of life decreased [None]
  - Malaise [None]
  - Headache [None]
  - Alopecia [None]
  - Back pain [None]
  - Feeling abnormal [None]
  - Disturbance in attention [None]
  - Mood swings [None]

NARRATIVE: CASE EVENT DATE: 20161116
